FAERS Safety Report 10017757 (Version 1)
Quarter: 2014Q1

REPORT INFORMATION
  Report Type: Spontaneous
  Country: US (occurrence: US)
  Receive Date: 20140318
  Receipt Date: 20140318
  Transmission Date: 20141002
  Serious: No
  Sender: FDA-Public Use
  Company Number: US-BRISTOL-MYERS SQUIBB COMPANY-18798561

PATIENT
  Age: 75 Year
  Sex: Male

DRUGS (1)
  1. ERBITUX [Suspect]
     Indication: TONSIL CANCER
     Dosage: WEEKLY DOSE FOR 7WK
     Dates: start: 20130415

REACTIONS (2)
  - Pyrexia [Unknown]
  - Hyperhidrosis [Unknown]
